FAERS Safety Report 9585691 (Version 4)
Quarter: 2013Q4

REPORT INFORMATION
  Report Type: Spontaneous
  Country: US (occurrence: US)
  Receive Date: 20131003
  Receipt Date: 20131018
  Transmission Date: 20140711
  Serious: Yes (Hospitalization, Other)
  Sender: FDA-Public Use
  Company Number: US-MERCK-1309USA012469

PATIENT
  Age: 78 Year
  Sex: Female

DRUGS (19)
  1. JANUMET [Suspect]
     Indication: TYPE 2 DIABETES MELLITUS
     Dosage: 1 TABLET, BID
     Route: 048
     Dates: start: 201109
  2. GLIMEPIRIDE [Concomitant]
  3. MYRBETRIQ [Concomitant]
  4. METOPROLOL [Concomitant]
  5. LEVOTHYROXINE SODIUM [Concomitant]
  6. PRILOSEC [Concomitant]
     Route: 048
  7. CHOLECALCIFEROL [Concomitant]
  8. PYRIDOXINE [Concomitant]
  9. CYANOCOBALAMIN [Concomitant]
  10. CINNAMON [Concomitant]
  11. ASCORBIC ACID [Concomitant]
  12. MEVACOR TABLET [Concomitant]
     Route: 048
  13. OCUVITE [Concomitant]
  14. FOLIC ACID [Concomitant]
  15. ASPIRIN [Concomitant]
  16. UBIDECARENONE [Concomitant]
  17. FLAXSEED [Concomitant]
  18. NAPROXEN [Concomitant]
  19. TRAMADOL HYDROCHLORIDE [Concomitant]

REACTIONS (1)
  - Myocardial infarction [Unknown]
